FAERS Safety Report 8589576-0 (Version None)
Quarter: 2012Q3

REPORT INFORMATION
  Report Type: 
  Country: None (occurrence: None)
  Receive Date: 20120813
  Receipt Date: 20120806
  Transmission Date: 20120928
  Serious: Yes (Hospitalization)
  Sender: FDA-Public Use
  Company Number: JP-ACTELION-A-CH2012-69740

PATIENT
  Age: 76 Year
  Sex: Female
  Weight: 47 kg

DRUGS (1)
  1. TRACLEER [Suspect]
     Indication: PULMONARY ARTERIAL HYPERTENSION
     Dosage: UNK
     Route: 048
     Dates: start: 20120713, end: 20120717

REACTIONS (3)
  - CARDIAC FAILURE [None]
  - WEIGHT INCREASED [None]
  - MALAISE [None]
